FAERS Safety Report 6616260-2 (Version None)
Quarter: 2010Q1

REPORT INFORMATION
  Report Type: 
  Country: None (occurrence: None)
  Receive Date: 20100305
  Receipt Date: 20100222
  Transmission Date: 20100710
  Serious: Yes (Hospitalization)
  Sender: FDA-Public Use
  Company Number: TW-ELI_LILLY_AND_COMPANY-TW200912000682

PATIENT
  Age: 37 Year
  Sex: Male

DRUGS (10)
  1. GEMCITABINE HCL [Suspect]
     Indication: NON-SMALL CELL LUNG CANCER STAGE IIIB
     Dosage: 1580 MG, DAILY (1/D) 2 TIMES/CYCLE
     Route: 042
     Dates: start: 20090903, end: 20091016
  2. CISPLATIN [Suspect]
     Indication: NON-SMALL CELL LUNG CANCER STAGE IIIB
     Dosage: 94.8 MG, EVERY 3 WEEKS, 1 TIME/CYCLE
     Route: 042
     Dates: start: 20090903, end: 20091016
  3. LEXOTAN [Concomitant]
     Indication: ANXIETY
     Dates: start: 20091003, end: 20091006
  4. INDERAL [Concomitant]
     Indication: ANXIETY
     Dates: start: 20091003, end: 20091006
  5. CODEINE SULFATE [Concomitant]
     Indication: COUGH
     Dosage: UNK, UNK
     Dates: start: 20091012, end: 20091017
  6. MAGNESIUM OXIDE [Concomitant]
     Indication: CONSTIPATION PROPHYLAXIS
     Dates: start: 20091012, end: 20091017
  7. COUGH AND COLD PREPARATIONS [Concomitant]
     Indication: COUGH
     Dates: start: 20091012, end: 20091017
  8. KYTRIL [Concomitant]
     Indication: PROPHYLAXIS OF NAUSEA AND VOMITING
     Dates: start: 20091016, end: 20091016
  9. DEXAMETHASONE [Concomitant]
     Indication: PROPHYLAXIS OF NAUSEA AND VOMITING
     Dates: start: 20091016, end: 20091016
  10. DIPHENHYDRAMINE HYDROCHLORIDE [Concomitant]
     Indication: PROPHYLAXIS
     Dates: start: 20091016, end: 20091016

REACTIONS (1)
  - PNEUMONIA [None]
